FAERS Safety Report 9934768 (Version 2)
Quarter: 2014Q1

REPORT INFORMATION
  Report Type: Spontaneous
  Country: DE (occurrence: DE)
  Receive Date: 20140228
  Receipt Date: 20140228
  Transmission Date: 20141002
  Serious: Yes (Hospitalization, Other)
  Sender: FDA-Public Use
  Company Number: DE-B.I. PHARMACEUTICALS,INC./RIDGEFIELD-1995-BK-04004

PATIENT
  Sex: Female

DRUGS (2)
  1. CATAPRES [Suspect]
     Indication: HYPERTENSION
     Dosage: 10 - 25 TABLETS (EACH WITH 0.3 MG)
     Route: 048
  2. DIAZEPAM [Concomitant]
     Indication: PRODUCT USED FOR UNKNOWN INDICATION
     Dosage: 40 -60 MG
     Route: 048

REACTIONS (9)
  - Drug abuse [Recovered/Resolved]
  - Intentional overdose [Recovered/Resolved]
  - Nervousness [Recovered/Resolved]
  - Anxiety [Recovered/Resolved]
  - Panic reaction [Recovered/Resolved]
  - Suicidal ideation [Recovered/Resolved]
  - Hyperhidrosis [Recovered/Resolved]
  - Hypertension [Recovered/Resolved]
  - Tachycardia [Recovered/Resolved]
